FAERS Safety Report 5035084-3 (Version None)
Quarter: 2006Q2

REPORT INFORMATION
  Report Type: 
  Country: None (occurrence: None)
  Receive Date: 20060627
  Receipt Date: 20060622
  Transmission Date: 20061013
  Serious: Yes (Other)
  Sender: FDA-Public Use
  Company Number: JP-SP-2006-01570

PATIENT
  Age: 78 Year
  Sex: Male

DRUGS (3)
  1. IMMUCYST [Suspect]
     Indication: BLADDER CANCER
     Route: 043
     Dates: end: 20050614
  2. GOSERELIN ACETATE [Concomitant]
     Dates: start: 20050517, end: 20050628
  3. BICALUTAMIDE [Concomitant]
     Dates: start: 20050517

REACTIONS (7)
  - EPIDIDYMITIS [None]
  - HAEMATOMA [None]
  - LUNG NEOPLASM MALIGNANT [None]
  - ORCHITIS [None]
  - PULMONARY TUBERCULOSIS [None]
  - ROAD TRAFFIC ACCIDENT [None]
  - TESTICULAR SWELLING [None]
